FAERS Safety Report 14596545 (Version 4)
Quarter: 2018Q2

REPORT INFORMATION
  Report Type: Spontaneous
  Country: GB (occurrence: GB)
  Receive Date: 20180304
  Receipt Date: 20180411
  Transmission Date: 20180711
  Serious: Yes (Hospitalization)
  Sender: FDA-Public Use
  Company Number: GB-DEXPHARM-20180133

PATIENT
  Age: 67 Year
  Sex: Female

DRUGS (9)
  1. PERINDOPRIL [Concomitant]
     Active Substance: PERINDOPRIL
  2. ZIMOVANE [Concomitant]
     Active Substance: ZOPICLONE
     Indication: SEDATIVE THERAPY
  3. OMEPRAZOLE. [Suspect]
     Active Substance: OMEPRAZOLE
  4. BISOPROLOL [Concomitant]
     Active Substance: BISOPROLOL
     Dosage: 10 MG, UNK
  5. ZIMOVANE [Concomitant]
     Active Substance: ZOPICLONE
     Indication: SEDATIVE THERAPY
     Dates: start: 201801
  6. FUROSEMIDE. [Concomitant]
     Active Substance: FUROSEMIDE
     Indication: HYPERTENSION
     Dosage: 10 MG, UNK
  7. PHENERGAN [Suspect]
     Active Substance: PROMETHAZINE HYDROCHLORIDE
     Indication: INSOMNIA
     Dosage: 10 MG, BID
     Dates: start: 20180112, end: 20180113
  8. IVABRADINE [Concomitant]
     Active Substance: IVABRADINE
     Indication: CARDIAC DISORDER
     Dosage: 10 MG, UNK
  9. SPIRONOLACTONE. [Concomitant]
     Active Substance: SPIRONOLACTONE

REACTIONS (23)
  - Disturbance in attention [Recovering/Resolving]
  - Syncope [Recovered/Resolved]
  - Hot flush [Recovered/Resolved]
  - Eye disorder [Recovering/Resolving]
  - Decreased appetite [Recovered/Resolved]
  - Disorientation [Recovered/Resolved]
  - Dizziness [Recovered/Resolved]
  - Palpitations [Recovering/Resolving]
  - Dysuria [Recovered/Resolved]
  - Dry mouth [Recovered/Resolved]
  - Fear [Recovering/Resolving]
  - Malaise [Recovered/Resolved]
  - Tremor [Recovered/Resolved]
  - Suicidal ideation [Recovered/Resolved]
  - Heart rate increased [Recovered/Resolved]
  - Memory impairment [Recovering/Resolving]
  - Restlessness [Recovered/Resolved]
  - Vision blurred [Recovered/Resolved]
  - Confusional state [Recovered/Resolved]
  - Loss of control of legs [Recovered/Resolved]
  - Nightmare [Recovered/Resolved]
  - Photosensitivity reaction [Recovered/Resolved]
  - Mental disorder [Recovering/Resolving]

NARRATIVE: CASE EVENT DATE: 2018
